FAERS Safety Report 8886813 (Version 1)
Quarter: 2012Q4

REPORT INFORMATION
  Report Type: 
  Country: GB (occurrence: GB)
  Receive Date: 20121105
  Receipt Date: 20121105
  Transmission Date: 20130627
  Serious: Yes (Hospitalization, Other)
  Sender: FDA-Public Use
  Company Number: GB-PFIZER INC-2012272475

PATIENT
  Age: 62 Year
  Sex: Male

DRUGS (2)
  1. SUTENT [Suspect]
     Indication: METASTATIC RENAL CELL CARCINOMA
     Dosage: four weeks on, two weeks off regime
     Dates: start: 2010
  2. IBUPROFEN [Concomitant]

REACTIONS (11)
  - Pneumonia [Unknown]
  - Mouth ulceration [Recovering/Resolving]
  - Ageusia [Recovering/Resolving]
  - Hyperaesthesia [Recovering/Resolving]
  - Skin exfoliation [Recovering/Resolving]
  - Alopecia [Recovering/Resolving]
  - Diarrhoea [Recovering/Resolving]
  - Decreased appetite [Recovering/Resolving]
  - Hepatic enzyme abnormal [Unknown]
  - Exercise tolerance decreased [Unknown]
  - Depression [Unknown]
